FAERS Safety Report 9227512 (Version 1)
Quarter: 2013Q2

REPORT INFORMATION
  Report Type: Spontaneous
  Country: IT (occurrence: None)
  Receive Date: 20130410
  Receipt Date: 20130410
  Transmission Date: 20140414
  Serious: Yes (Other)
  Sender: FDA-Public Use
  Company Number: 1660218

PATIENT
  Age: 64 Year
  Sex: Female

DRUGS (3)
  1. (OXALIPLATIN) [Suspect]
     Indication: COLON CANCER
     Dosage: 85 MG/M 2 MILLIGRAM(S)/SQ. METER (CYCLICAL)?INTRAVENOUS (NOT OTHERWISE SPECIFIED)
     Route: 042
     Dates: start: 20121203, end: 20130325
  2. )SOLDESAM) [Concomitant]
  3. (KYTRIL) [Concomitant]

REACTIONS (1)
  - Hypersensitivity [None]
